FAERS Safety Report 17135519 (Version 2)
Quarter: 2019Q4

REPORT INFORMATION
  Report Type: Spontaneous
  Country: US (occurrence: US)
  Receive Date: 20191210
  Receipt Date: 20191217
  Transmission Date: 20200122
  Serious: Yes (Other)
  Sender: FDA-Public Use
  Company Number: US-FDC LIMITED-2019RIS00607

PATIENT
  Age: 84 Year
  Sex: Female

DRUGS (6)
  1. TIMOLOL MALEATE. [Suspect]
     Active Substance: TIMOLOL MALEATE
     Indication: INTRAOCULAR PRESSURE INCREASED
     Dosage: 1 DROP, 1X/DAY IN EACH EYE IN THE EARLY MORNING
     Route: 047
     Dates: start: 20181206
  2. DORZOLAMIDE HCL (AKORN) [Suspect]
     Active Substance: DORZOLAMIDE HYDROCHLORIDE
  3. AVASTIN [Suspect]
     Active Substance: BEVACIZUMAB
     Dosage: ^FOR HER LEFT EYE^
     Dates: start: 2017
  4. TIMOLOL MALEATE. [Suspect]
     Active Substance: TIMOLOL MALEATE
     Dosage: ^OFTEN GOT MORE DROPS THEN NEEDED^
  5. TRAVATAN [Suspect]
     Active Substance: TRAVOPROST
  6. AVASTIN [Suspect]
     Active Substance: BEVACIZUMAB
     Dosage: ^FOR HER RIGHT EYE^
     Dates: start: 2015

REACTIONS (7)
  - Neovascular age-related macular degeneration [Not Recovered/Not Resolved]
  - Central vision loss [Not Recovered/Not Resolved]
  - Visual impairment [Unknown]
  - Glaucoma [Not Recovered/Not Resolved]
  - Accidental overdose [Unknown]
  - Vision blurred [Unknown]
  - Intraocular pressure increased [Recovering/Resolving]

NARRATIVE: CASE EVENT DATE: 20191004
